FAERS Safety Report 16721709 (Version 1)
Quarter: 2019Q3

REPORT INFORMATION
  Report Type: Report from Study
  Country: TW (occurrence: TW)
  Receive Date: 20190820
  Receipt Date: 20190820
  Transmission Date: 20191005
  Serious: Yes (Hospitalization)
  Sender: FDA-Public Use
  Company Number: PHHY2016TW124121

PATIENT
  Age: 83 Year
  Sex: Male
  Weight: 54.9 kg

DRUGS (28)
  1. TASIGNA [Suspect]
     Active Substance: NILOTINIB
     Dosage: 150 MG, UNK
     Route: 048
     Dates: start: 20160504, end: 20160531
  2. RINDERON [Concomitant]
     Indication: TRANSFUSION
     Dosage: 4 MG, UNK
     Route: 041
     Dates: start: 20160323, end: 20160323
  3. MAGNESIUM [Concomitant]
     Active Substance: MAGNESIUM
     Indication: CONSTIPATION
     Dosage: 250 MG, UNK
     Route: 048
     Dates: start: 20160827, end: 20170215
  4. RASITOL [Concomitant]
     Indication: TRANSFUSION
     Dosage: 20 MG / 2 ML
     Route: 042
     Dates: start: 20160323, end: 20160323
  5. TASIGNA [Suspect]
     Active Substance: NILOTINIB
     Indication: CHRONIC MYELOID LEUKAEMIA
     Dosage: 600 MG, QD
     Route: 048
     Dates: start: 20160302, end: 20160322
  6. TASIGNA [Suspect]
     Active Substance: NILOTINIB
     Dosage: 150 MG, UNK
     Route: 048
     Dates: start: 20160824, end: 20170228
  7. AMARYL M [Concomitant]
     Active Substance: GLIMEPIRIDE\METFORMIN
     Indication: TYPE 2 DIABETES MELLITUS
     Dosage: 1 DF, UNK (GLIMEPIRIDE 2 MG, METFORMIN HYDROCHLORIDE 500 MG) (STARTED }3MONTHSBEFOREVISIT1)
     Route: 048
  8. GLICLAZIDE [Concomitant]
     Active Substance: GLICLAZIDE
     Indication: TYPE 2 DIABETES MELLITUS
     Dosage: 1 DF, UNK
     Route: 048
     Dates: start: 20180127
  9. MYCOMB CREAM [Concomitant]
     Indication: INFECTION PROPHYLAXIS
     Dosage: 10 G/ TUBE
     Route: 061
     Dates: start: 20160511, end: 20160518
  10. SENNOSIDE A+B [Concomitant]
     Active Substance: SENNOSIDES A AND B
     Indication: CONSTIPATION
     Dosage: 2 DF, UNK
     Route: 048
     Dates: start: 20170513
  11. VYTORIN [Concomitant]
     Active Substance: EZETIMIBE\SIMVASTATIN
     Indication: HYPERCHOLESTEROLAEMIA
     Dosage: 20 MG, (10/20 MG)
     Route: 048
     Dates: start: 20161119
  12. BOKEY [Concomitant]
     Indication: HYPERTENSION
     Dosage: 100 MG, UNK (STARTED }3MONTHSBEFOREVISIT1)
     Route: 048
  13. JANUMET [Concomitant]
     Active Substance: METFORMIN HYDROCHLORIDE\SITAGLIPTIN PHOSPHATE
     Indication: TYPE 2 DIABETES MELLITUS
     Dosage: 1 DF, UNK (METFORMIN HYDROCHLORIDE 500 MG, SITAGLIPTIN PHOSPHATE MONOHYDRATE 50 MG) (STARTED }3MONTH
     Route: 048
     Dates: start: 20160624, end: 20170215
  14. ACID ACETYLSALICYLIC [Concomitant]
     Active Substance: ASPIRIN
     Indication: MYOCARDIAL ISCHAEMIA
     Dosage: 100 MG, UNK
     Route: 048
     Dates: start: 20160827
  15. DIPHENHYDRAMINE HCL [Concomitant]
     Active Substance: DIPHENHYDRAMINE HYDROCHLORIDE
     Indication: TRANSFUSION
     Dosage: 30 MG, UNK
     Route: 041
     Dates: start: 20160323, end: 20160323
  16. FUROSEMIDE. [Concomitant]
     Active Substance: FUROSEMIDE
     Indication: HYPERTENSION
     Dosage: 20 MG, UNK
     Route: 048
     Dates: start: 20160827
  17. NORMAL SALINE [Concomitant]
     Active Substance: SODIUM CHLORIDE
     Indication: TRANSFUSION
     Dosage: 250 ML, BTL
     Route: 041
     Dates: start: 20160323, end: 20160323
  18. WANSE [Concomitant]
     Indication: SINUS NODE DYSFUNCTION
     Dosage: 100 MG, UNK (STARTED }3MONTHSBEFOREVISIT1)
     Route: 048
  19. TASIGNA [Suspect]
     Active Substance: NILOTINIB
     Dosage: 150 MG, UNK
     Route: 048
     Dates: start: 20160727, end: 20160810
  20. TASIGNA [Suspect]
     Active Substance: NILOTINIB
     Dosage: 150 MG, UNK
     Route: 048
     Dates: start: 20170301
  21. TRAJENTA [Concomitant]
     Active Substance: LINAGLIPTIN
     Indication: TYPE 2 DIABETES MELLITUS
     Dosage: 1 DF, UNK
     Route: 048
     Dates: start: 20170215
  22. LASIX [Concomitant]
     Active Substance: FUROSEMIDE
     Indication: HYPERTENSION
     Dosage: 0.5 DF, UNK (STARTED }3MONTHSBEFOREVISIT1)
     Route: 048
  23. URIEF [Concomitant]
     Active Substance: SILODOSIN
     Indication: BENIGN PROSTATIC HYPERPLASIA
     Dosage: 4 MG, UNK(STARTED }3MONTHSBEFOREVISIT1)
     Route: 048
  24. SENNA PIN [Concomitant]
     Indication: CONSTIPATION
     Dosage: 2 DF, UNK
     Route: 048
     Dates: start: 20160621, end: 20160623
  25. MAGNESIUM OXIDE. [Concomitant]
     Active Substance: MAGNESIUM OXIDE
     Indication: CHRONIC GASTRITIS
     Dosage: 250 MG, UNK (STARTED }3MONTHSBEFOREVISIT1)
     Route: 048
  26. PANADOL [Concomitant]
     Active Substance: ACETAMINOPHEN
     Indication: HERNIA
     Dosage: 500 MG, UNK (STARTED }3MONTHSBEFOREVISIT1)
     Route: 048
  27. ROWAPRAXIN [Concomitant]
     Indication: SINUS NODE DYSFUNCTION
     Dosage: 10 MG, UNK (STARTED }3MONTHSBEFOREVISIT1)
     Route: 048
  28. METFORMIN [Concomitant]
     Active Substance: METFORMIN HYDROCHLORIDE
     Indication: TYPE 2 DIABETES MELLITUS
     Dosage: 500 MG, UNK
     Route: 048
     Dates: start: 20160827, end: 20170215

REACTIONS (2)
  - Ecchymosis [Recovered/Resolved]
  - Inguinal hernia [Recovering/Resolving]

NARRATIVE: CASE EVENT DATE: 20160614
